FAERS Safety Report 4563717-4 (Version None)
Quarter: 2005Q1

REPORT INFORMATION
  Report Type: 
  Country: None (occurrence: None)
  Receive Date: 20050121
  Receipt Date: 20050110
  Transmission Date: 20050727
  Serious: Yes (Other)
  Sender: FDA-Public Use
  Company Number: 2004111020

PATIENT
  Age: 89 Year
  Sex: Male

DRUGS (5)
  1. LIPITOR [Suspect]
     Indication: ILL-DEFINED DISORDER
  2. ACCUPRIL [Suspect]
     Indication: ILL-DEFINED DISORDER
  3. LOPID [Suspect]
     Indication: ILL-DEFINED DISORDER
  4. WARFARIN SODIUM [Concomitant]
  5. ALL OTHER THERAPEUTIC PRODUCTS (ALL OTHER THERAPEUTIC PRODUCTS) [Concomitant]

REACTIONS (1)
  - OSTEOMYELITIS [None]
